FAERS Safety Report 8280744-4 (Version None)
Quarter: 2012Q2

REPORT INFORMATION
  Report Type: 
  Country: None (occurrence: None)
  Receive Date: 20120412
  Receipt Date: 20120403
  Transmission Date: 20120825
  Serious: Yes (Disabling, Other)
  Sender: FDA-Public Use
  Company Number: FR-ABBOTT-12P-056-0921770-00

PATIENT
  Sex: Male

DRUGS (4)
  1. MONONAXY [Suspect]
     Indication: INFECTION
     Route: 048
     Dates: start: 20101101
  2. FLUOCINOLONE ACETONIDE, POLYMYXINE B, NEOMYCINE (ANTIBIOSYNALAR) [Concomitant]
     Indication: INFECTION
  3. PREDNISOLONE [Concomitant]
     Indication: INFECTION
  4. OTHER UNSPECIFIED ANTIBIOTIC [Concomitant]
     Indication: PRODUCT USED FOR UNKNOWN INDICATION

REACTIONS (2)
  - HYPERACUSIS [None]
  - HEADACHE [None]
